FAERS Safety Report 9712370 (Version 2)
Quarter: 2013Q4

REPORT INFORMATION
  Report Type: Spontaneous
  Country: US (occurrence: US)
  Receive Date: 20131126
  Receipt Date: 20131126
  Transmission Date: 20140711
  Serious: No
  Sender: FDA-Public Use
  Company Number: US-BRISTOL-MYERS SQUIBB COMPANY-19174960

PATIENT
  Age: 55 Year
  Sex: Female
  Weight: 132.88 kg

DRUGS (1)
  1. BYDUREON 2MG SUSPENSION [Suspect]
     Indication: TYPE 2 DIABETES MELLITUS
     Dosage: THERAPY ON 30JUL13,31JUL13
     Route: 058
     Dates: start: 20130729

REACTIONS (3)
  - Overdose [Unknown]
  - Weight decreased [Unknown]
  - Dysphonia [Unknown]
